FAERS Safety Report 18346957 (Version 3)
Quarter: 2020Q4

REPORT INFORMATION
  Report Type: Spontaneous
  Country: JP (occurrence: JP)
  Receive Date: 20201005
  Receipt Date: 20201215
  Transmission Date: 20210114
  Serious: Yes (Hospitalization, Other)
  Sender: FDA-Public Use
  Company Number: JP-AMGEN-JPNSP2020149247

PATIENT
  Age: 78 Year
  Sex: Male
  Weight: 54 kg

DRUGS (16)
  1. ALACEPRIL [Concomitant]
     Active Substance: ALACEPRIL
     Indication: HYPERTENSION
     Dosage: 25 MILLIGRAM, TID (AFTER EACH MEAL)
     Dates: end: 20200907
  2. ROSPOLIA [Concomitant]
     Dosage: 1 MILLIGRAM, BID (AFTER BREAKFAST AND DINNER)
  3. TENELIA [Concomitant]
     Active Substance: TENELIGLIPTIN
     Indication: DIABETES MELLITUS
     Dosage: 20 MILLIGRAM, QD (AFTER BREAKFAST)
     Dates: end: 20200907
  4. ALDIOXA [Concomitant]
     Active Substance: ALDIOXA
     Dosage: 0.8 GRAM/DAY (IN THREE DIVIDED DOSES) THRICE AFTER EACH MEAL
  5. MARDUOX [Concomitant]
     Active Substance: BETAMETHASONE BUTYRATE PROPIONATE\MAXACALCITOL
     Dosage: APPLICATION (BODY, EXTREMITIES), ONCE DAILY
  6. OTEZLA [Suspect]
     Active Substance: APREMILAST
     Indication: PSORIASIS
     Dosage: 30 MILLIGRAM, BID (AFTER BREAKFAST AND DINNER)
     Route: 048
     Dates: start: 20190808, end: 20200907
  7. SALEX [BETAMETHASONE BUTYRATE PROPIONATE] [Concomitant]
     Dosage: APPLICATION (TRUB=NK, UPPER AND LOWER EXTREMITIES), ONCE OR TWICE DAILY
  8. GASLON [Concomitant]
     Active Substance: IRSOGLADINE MALEATE
     Dosage: 0.5 GRAM/DAY (IN THREE DIVIDED DOSES) THRICE AFTER EACH MEAL
  9. ZOLPIDEM TARTRATE. [Concomitant]
     Active Substance: ZOLPIDEM TARTRATE
     Dosage: 10 MILLIGRAM, QD (BEFORE BEDTIME)
  10. POLYFUL [Concomitant]
     Active Substance: CALCIUM POLYCARBOPHIL
     Dosage: 500 MILLIGRAM, TID (AFTER EACH MEAL)
     Dates: start: 20200827
  11. FEXOFENADINE HYDROCHLORIDE. [Concomitant]
     Active Substance: FEXOFENADINE HYDROCHLORIDE
     Indication: PSORIASIS
     Dosage: 120 MILLIGRAM, BID (AFTER BREAKFAST AND DINNER)
     Dates: end: 20200907
  12. THIOLA [Concomitant]
     Active Substance: TIOPRONIN
     Dosage: 100 MILLIGRAM, TID (AFTER EACH MEAL)
  13. HEPARINOID [Concomitant]
     Active Substance: CHONDROITIN SULFATE (BOVINE)
     Dosage: APPLICATION (TRUNK, UPPER AND LOWER EXTREMITIES), ONCE OT TWICE DAILY
  14. VOALLA [Concomitant]
     Dosage: UNK UNK, QD
  15. RUPAFIN [Concomitant]
     Active Substance: RUPATADINE FUMARATE
     Dosage: 10 MILLIGRAM, QD (AT BEDTIME)
  16. ALDOMET [Concomitant]
     Active Substance: METHYLDOPA
     Indication: HYPERTENSION
     Dosage: 250 MILLIGRAM, TID (AFTER EACH MEAL)
     Dates: end: 20200907

REACTIONS (4)
  - Clostridium difficile infection [Recovered/Resolved]
  - Acute kidney injury [Recovered/Resolved]
  - Hypokalaemia [Recovered/Resolved]
  - Dehydration [Unknown]

NARRATIVE: CASE EVENT DATE: 20200907
